FAERS Safety Report 6556730-9 (Version None)
Quarter: 2010Q1

REPORT INFORMATION
  Report Type: 
  Country: None (occurrence: None)
  Receive Date: 20100125
  Receipt Date: 20100120
  Transmission Date: 20100710
  Serious: Yes (Life-Threatening, Hospitalization, Other)
  Sender: FDA-Public Use
  Company Number: 2009SP042855

PATIENT
  Age: 35 Year
  Sex: Male

DRUGS (2)
  1. PEG-INTRON [Suspect]
     Indication: HEPATITIS C
     Dosage: ; SC
     Route: 058
     Dates: start: 20090919
  2. RIBAPAK [Suspect]
     Indication: HEPATITIS C
     Dosage: ; PO
     Route: 048
     Dates: start: 20090919

REACTIONS (10)
  - ANXIETY [None]
  - COMA [None]
  - INSOMNIA [None]
  - IRRITABILITY [None]
  - KETOACIDOSIS [None]
  - PAIN [None]
  - PNEUMONIA [None]
  - RESPIRATORY ARREST [None]
  - RESPIRATORY FAILURE [None]
  - TONSILLITIS [None]
